FAERS Safety Report 8645435 (Version 2)
Quarter: 2012Q4

REPORT INFORMATION
  Report Type: 
  Country: US (occurrence: US)
  Receive Date: 20120702
  Receipt Date: 20120918
  Transmission Date: 20130627
  Serious: Yes (Death, Other)
  Sender: FDA-Public Use
  Company Number: US-PFIZER INC-2011124958

PATIENT
  Age: 90 Year
  Sex: Male

DRUGS (2)
  1. SUTENT [Suspect]
     Indication: RENAL CANCER
     Dosage: 37.5 mg, UNK
     Dates: start: 20110422
  2. SUTENT [Suspect]
     Dosage: 25 mg, 1x/day

REACTIONS (3)
  - Death [Fatal]
  - Stomatitis [Unknown]
  - Rash [Unknown]
